FAERS Safety Report 8960318 (Version 5)
Quarter: 2013Q3

REPORT INFORMATION
  Report Type: Spontaneous
  Country: US (occurrence: US)
  Receive Date: 20121211
  Receipt Date: 20130802
  Transmission Date: 20140515
  Serious: Yes (Hospitalization, Disabling, Other)
  Sender: FDA-Public Use
  Company Number: US-009507513-1205USA00030

PATIENT
  Sex: Female
  Weight: 61.22 kg

DRUGS (6)
  1. FOSAMAX [Suspect]
     Indication: OSTEOPOROSIS
     Dosage: 70 MG, UNK
     Route: 048
     Dates: start: 20020822, end: 20080430
  2. FOSAMAX [Suspect]
     Dosage: UNK UNK, QW
     Route: 048
     Dates: start: 20030430, end: 20030624
  3. CALCIUM (UNSPECIFIED) [Concomitant]
     Dosage: UNK
     Dates: start: 2000
  4. MAGNESIUM (UNSPECIFIED) [Concomitant]
     Dosage: UNK
     Dates: start: 2000
  5. ONE-A-DAY ESSENTIAL VITAMINS [Concomitant]
     Dosage: UNK
     Dates: start: 2000
  6. LIPITOR [Concomitant]

REACTIONS (40)
  - Femoral neck fracture [Not Recovered/Not Resolved]
  - Impaired healing [Unknown]
  - Sciatic nerve injury [Not Recovered/Not Resolved]
  - Procedural complication [Not Recovered/Not Resolved]
  - Hip arthroplasty [Not Recovered/Not Resolved]
  - Peroneal nerve palsy [Unknown]
  - Upper gastrointestinal haemorrhage [Recovered/Resolved]
  - Syncope [Unknown]
  - Anaemia [Recovered/Resolved]
  - Transfusion [Recovered/Resolved]
  - Nodal rhythm [Unknown]
  - Bundle branch block left [Unknown]
  - Carotid bruit [Unknown]
  - Anaemia [Recovered/Resolved]
  - Depression [Unknown]
  - Oesophageal candidiasis [Unknown]
  - Fall [Unknown]
  - Paralysis [Unknown]
  - Bladder repair [Unknown]
  - Retching [Unknown]
  - Back pain [Recovered/Resolved]
  - Hypoaesthesia [Not Recovered/Not Resolved]
  - Neuropathy peripheral [Unknown]
  - Neuralgia [Unknown]
  - Peptic ulcer [Unknown]
  - Diplopia [Recovered/Resolved]
  - Hysterectomy [Unknown]
  - Transient ischaemic attack [Unknown]
  - Decubitus ulcer [Unknown]
  - Oesophageal candidiasis [Unknown]
  - Gastritis atrophic [Unknown]
  - Cough [Unknown]
  - Nasopharyngitis [Unknown]
  - Hypotension [Unknown]
  - Contusion [Unknown]
  - Constipation [Unknown]
  - Gastrooesophageal reflux disease [Not Recovered/Not Resolved]
  - Dysphagia [Unknown]
  - Oesophagitis [Not Recovered/Not Resolved]
  - Drug ineffective [Unknown]
